FAERS Safety Report 5249482-6 (Version None)
Quarter: 2007Q1

REPORT INFORMATION
  Report Type: 
  Country: None (occurrence: None)
  Receive Date: 20070228
  Receipt Date: 20061129
  Transmission Date: 20070707
  Serious: Yes (Life-Threatening, Hospitalization, Other)
  Sender: FDA-Public Use
  Company Number: US-GLAXOSMITHKLINE-A0629439A

PATIENT
  Sex: Female

DRUGS (2)
  1. VALTREX [Suspect]
     Dosage: 1CAPL THREE TIMES PER DAY
     Route: 048
  2. NO CONCURRENT MEDICATION [Concomitant]

REACTIONS (2)
  - CONFUSIONAL STATE [None]
  - RENAL FAILURE [None]
